FAERS Safety Report 24960971 (Version 1)
Quarter: 2025Q1

REPORT INFORMATION
  Report Type: Spontaneous
  Country: DK (occurrence: DK)
  Receive Date: 20250212
  Receipt Date: 20250212
  Transmission Date: 20250409
  Serious: Yes (Other)
  Sender: PFIZER
  Company Number: DK-PFIZER INC-202500028262

PATIENT
  Sex: Male

DRUGS (47)
  1. MEROPENEM [Suspect]
     Active Substance: MEROPENEM
     Indication: Infection
     Dosage: 20 MG/KG, 3X/DAY
     Route: 042
  2. PIPERACILLIN SODIUM\TAZOBACTAM SODIUM [Suspect]
     Active Substance: PIPERACILLIN SODIUM\TAZOBACTAM SODIUM
     Route: 042
  3. AMPICILLIN [Suspect]
     Active Substance: AMPICILLIN
     Route: 042
  4. PENICILLIN G [Suspect]
     Active Substance: PENICILLIN G
     Route: 042
  5. ANIDULAFUNGIN [Concomitant]
     Active Substance: ANIDULAFUNGIN
     Indication: Infection
     Dosage: 32 MG, 1X/DAY (DAYS: 11-35)
     Route: 042
  6. VALPROATE SODIUM [Concomitant]
     Active Substance: VALPROATE SODIUM
     Route: 042
  7. VALPROATE SODIUM [Concomitant]
     Active Substance: VALPROATE SODIUM
  8. VALPROATE SODIUM [Concomitant]
     Active Substance: VALPROATE SODIUM
     Route: 042
  9. VALPROATE SODIUM [Concomitant]
     Active Substance: VALPROATE SODIUM
  10. LAMOTRIGINE [Concomitant]
     Active Substance: LAMOTRIGINE
     Route: 048
  11. LAMOTRIGINE [Concomitant]
     Active Substance: LAMOTRIGINE
  12. TOPIRAMATE [Concomitant]
     Active Substance: TOPIRAMATE
     Route: 048
  13. CLOBAZAM [Concomitant]
     Active Substance: CLOBAZAM
     Route: 048
  14. LEVETIRACETAM [Concomitant]
     Active Substance: LEVETIRACETAM
     Route: 042
  15. FOSPHENYTOIN [Concomitant]
     Active Substance: FOSPHENYTOIN
     Route: 042
  16. MIDAZOLAM [Concomitant]
     Active Substance: MIDAZOLAM
     Route: 002
  17. MIDAZOLAM [Concomitant]
     Active Substance: MIDAZOLAM
     Route: 048
  18. MIDAZOLAM [Concomitant]
     Active Substance: MIDAZOLAM
     Route: 042
  19. PHENOBARBITAL [Concomitant]
     Active Substance: PHENOBARBITAL
     Route: 048
  20. PHENOBARBITAL [Concomitant]
     Active Substance: PHENOBARBITAL
     Route: 042
  21. ESOMEPRAZOLE [Concomitant]
     Active Substance: ESOMEPRAZOLE
     Route: 048
  22. ONDANSETRON [Concomitant]
     Active Substance: ONDANSETRON
     Route: 048
  23. ONDANSETRON [Concomitant]
     Active Substance: ONDANSETRON
     Route: 042
  24. CLONIDINE [Concomitant]
     Active Substance: CLONIDINE
     Route: 042
  25. DEXAMETHASONE [Concomitant]
     Active Substance: DEXAMETHASONE
     Route: 042
  26. GENTAMICIN [Concomitant]
     Active Substance: GENTAMICIN
     Route: 042
  27. METRONIDAZOLE [Concomitant]
     Active Substance: METRONIDAZOLE
     Route: 042
  28. FLUCONAZOLE [Concomitant]
     Active Substance: FLUCONAZOLE
     Route: 042
  29. KETOROLAC [Concomitant]
     Active Substance: KETOROLAC TROMETHAMINE
     Route: 042
  30. NAPROXEN [Concomitant]
     Active Substance: NAPROXEN
     Route: 048
  31. BACLOFEN [Concomitant]
     Active Substance: BACLOFEN
     Route: 048
  32. FENTANYL [Concomitant]
     Active Substance: FENTANYL
     Route: 042
  33. PROPOFOL [Concomitant]
     Active Substance: PROPOFOL
     Route: 042
  34. ACETAMINOPHEN [Concomitant]
     Active Substance: ACETAMINOPHEN
     Route: 048
  35. ACETAMINOPHEN [Concomitant]
     Active Substance: ACETAMINOPHEN
     Route: 042
  36. GABAPENTIN [Concomitant]
     Active Substance: GABAPENTIN
     Route: 048
  37. MORPHINE [Concomitant]
     Active Substance: MORPHINE
     Route: 048
  38. MORPHINE [Concomitant]
     Active Substance: MORPHINE
     Route: 042
  39. CLONAZEPAM [Concomitant]
     Active Substance: CLONAZEPAM
     Route: 048
  40. HALOPERIDOL [Concomitant]
     Active Substance: HALOPERIDOL
     Route: 042
  41. HALOPERIDOL [Concomitant]
     Active Substance: HALOPERIDOL
     Route: 048
  42. DIAZEPAM [Concomitant]
     Active Substance: DIAZEPAM
     Route: 054
  43. LORAZEPAM [Concomitant]
     Active Substance: LORAZEPAM
     Route: 048
  44. MELATONIN [Concomitant]
     Active Substance: MELATONIN
     Route: 048
  45. LEVOMEPROMAZINE [Concomitant]
     Active Substance: LEVOMEPROMAZINE
     Route: 048
  46. VALPROATE SODIUM [Concomitant]
     Active Substance: VALPROATE SODIUM
     Route: 048
  47. LEVETIRACETAM [Concomitant]
     Active Substance: LEVETIRACETAM
     Route: 048

REACTIONS (3)
  - Seizure [Unknown]
  - Dystonia [Unknown]
  - Myoclonus [Unknown]
